FAERS Safety Report 8664349 (Version 5)
Quarter: 2014Q2

REPORT INFORMATION
  Report Type: Spontaneous
  Country: US (occurrence: US)
  Receive Date: 20120713
  Receipt Date: 20131017
  Transmission Date: 20141212
  Serious: Yes (Other)
  Sender: FDA-Public Use
  Company Number: US-PFIZER INC-2012165984

PATIENT
  Age: 48 Year
  Sex: Male
  Weight: 71.2 kg

DRUGS (3)
  1. DILANTIN [Suspect]
     Indication: CONVULSION
     Dosage: 100 MG, 3X/DAY
     Route: 048
     Dates: start: 1977
  2. DILANTIN [Suspect]
     Dosage: 100 MG, 4X/DAY
     Route: 048
  3. DILANTIN [Suspect]
     Dosage: 100 MG, UNK
     Route: 048

REACTIONS (8)
  - Palpitations [Not Recovered/Not Resolved]
  - Anticonvulsant drug level increased [Unknown]
  - Hypoaesthesia [Unknown]
  - Pollakiuria [Recovered/Resolved]
  - Feeling abnormal [Unknown]
  - Compulsive lip biting [Recovered/Resolved]
  - Headache [Unknown]
  - Malaise [Unknown]
